FAERS Safety Report 15776492 (Version 1)
Quarter: 2018Q4

REPORT INFORMATION
  Report Type: Spontaneous
  Country: US (occurrence: US)
  Receive Date: 20181231
  Receipt Date: 20181231
  Transmission Date: 20190205
  Serious: No
  Sender: FDA-Public Use
  Company Number: US-AMGEN-USASP2018186202

PATIENT
  Age: 70 Year
  Sex: Female

DRUGS (2)
  1. CABOMETYX [Concomitant]
     Active Substance: CABOZANTINIB S-MALATE
     Indication: RENAL CELL CARCINOMA
     Route: 048
  2. PROLIA [Suspect]
     Active Substance: DENOSUMAB
     Indication: OSTEOPOROSIS POSTMENOPAUSAL
     Dosage: 60 MG, Q6MO
     Route: 065
     Dates: start: 201803

REACTIONS (3)
  - Dental caries [Unknown]
  - Gingival recession [Unknown]
  - Dry mouth [Unknown]

NARRATIVE: CASE EVENT DATE: 2016
